FAERS Safety Report 15681577 (Version 1)
Quarter: 2018Q4

REPORT INFORMATION
  Report Type: Report from Study
  Country: US (occurrence: US)
  Receive Date: 20181203
  Receipt Date: 20181203
  Transmission Date: 20190205
  Serious: Yes (Other)
  Sender: FDA-Public Use
  Company Number: US-PFIZER INC-2018237432

PATIENT
  Age: 64 Year
  Sex: Female

DRUGS (1)
  1. IBRANCE [Suspect]
     Active Substance: PALBOCICLIB
     Indication: BREAST CANCER FEMALE
     Dosage: 125 MG, CYCLIC (21 ON, 7 OFF) (DAILY)/21 DAYS IN A ROW, THEN 7 DAYS OFF
     Route: 048
     Dates: start: 20180518

REACTIONS (10)
  - Upper-airway cough syndrome [Unknown]
  - Leukopenia [Not Recovered/Not Resolved]
  - Glossodynia [Recovered/Resolved]
  - Oropharyngeal pain [Recovered/Resolved]
  - Fatigue [Recovered/Resolved]
  - Neutropenia [Recovering/Resolving]
  - Paranasal sinus hypersecretion [Unknown]
  - Dysphonia [Unknown]
  - Bone marrow failure [Recovering/Resolving]
  - Pulmonary thrombosis [Unknown]

NARRATIVE: CASE EVENT DATE: 2018
